FAERS Safety Report 17764897 (Version 2)
Quarter: 2021Q1

REPORT INFORMATION
  Report Type: Report from Study
  Country: CN (occurrence: CN)
  Receive Date: 20200511
  Receipt Date: 20210101
  Transmission Date: 20210419
  Serious: Yes (Hospitalization)
  Sender: FDA-Public Use
  Company Number: CN-ROCHE-2526232

PATIENT
  Age: 75 Year
  Sex: Female
  Weight: 69 kg

DRUGS (70)
  1. LEUCOGEN [Concomitant]
     Active Substance: LEUCOGEN
     Dates: start: 20190329, end: 20190418
  2. BERBERINE HYDROCHLORIDE [Concomitant]
     Active Substance: BERBERINE
     Indication: DIARRHOEA
     Dates: start: 20190731, end: 20190731
  3. REDUCED GLUTATHIONE SODIUM [Concomitant]
     Active Substance: GLUTATHIONE
     Dates: start: 20191225, end: 20191225
  4. OMEPRAZOLE SODIUM [Concomitant]
     Active Substance: OMEPRAZOLE SODIUM
     Route: 042
     Dates: start: 20200204, end: 20200204
  5. LANSOPRAZOLE. [Concomitant]
     Active Substance: LANSOPRAZOLE
     Dates: start: 20190327, end: 20190327
  6. LANSOPRAZOLE. [Concomitant]
     Active Substance: LANSOPRAZOLE
     Dates: start: 20190418, end: 20190418
  7. GLUTATHIONE REDUCED [Concomitant]
     Dates: start: 20190530, end: 20190530
  8. GLUTATHIONE REDUCED [Concomitant]
     Dates: start: 20191225, end: 20191225
  9. ENEMAC [Concomitant]
     Dates: start: 20190307, end: 20190307
  10. VITAMIN D3 [Concomitant]
     Active Substance: CHOLECALCIFEROL
     Indication: MINERAL SUPPLEMENTATION
     Dates: start: 20190329
  11. PREDNISONE ACETATE [Concomitant]
     Active Substance: PREDNISONE ACETATE
     Route: 048
     Dates: start: 20200303
  12. CARBOPLATIN. [Suspect]
     Active Substance: CARBOPLATIN
     Indication: NEOPLASM MALIGNANT
     Dosage: DOSE OF  CARBOPLATIN AT A DOSE TO ACHIEVE A TARGET AREA UNDER THE CURVE (AUC) OF 6 MILLIGRAMS PER MI
     Route: 042
     Dates: start: 20181120
  13. AMIFOSTINE. [Concomitant]
     Active Substance: AMIFOSTINE
     Dates: start: 20191113, end: 20191113
  14. LANSOPRAZOLE. [Concomitant]
     Active Substance: LANSOPRAZOLE
     Dates: start: 20190213, end: 20190213
  15. LANSOPRAZOLE. [Concomitant]
     Active Substance: LANSOPRAZOLE
     Route: 042
     Dates: start: 20191113, end: 20191113
  16. ZINACEF [Concomitant]
     Active Substance: CEFUROXIME SODIUM
     Indication: UPPER RESPIRATORY TRACT INFECTION
     Dates: start: 20190118, end: 20190127
  17. LACTULOSE. [Concomitant]
     Active Substance: LACTULOSE
     Indication: CONSTIPATION
     Dates: start: 20190123, end: 20190123
  18. BEVACIZUMAB. [Suspect]
     Active Substance: BEVACIZUMAB
     Indication: NEOPLASM MALIGNANT
     Dosage: DATE OF MOST RECENT DOSE OF BEVACIZUMAB WAS 990MG PRIOR TO AE ONSET: 04/FEB/2020
     Route: 042
     Dates: start: 20181211
  19. BERBERINE HYDROCHLORIDE [Concomitant]
     Active Substance: BERBERINE
     Indication: HYPOTHYROIDISM
     Dates: start: 20190803, end: 20200205
  20. LANSOPRAZOLE. [Concomitant]
     Active Substance: LANSOPRAZOLE
     Dates: start: 20191023, end: 20191023
  21. LANSOPRAZOLE. [Concomitant]
     Active Substance: LANSOPRAZOLE
     Route: 042
     Dates: start: 20191204, end: 20191204
  22. AZASETRON HYDROCHLORIDE;SODIUM CHLORIDE [Concomitant]
     Dates: start: 20190123, end: 20190123
  23. POTASSIUM CHLORIDE. [Concomitant]
     Active Substance: POTASSIUM CHLORIDE
     Route: 042
     Dates: start: 20191225, end: 20191225
  24. GLUTATHIONE REDUCED [Concomitant]
     Route: 042
     Dates: start: 20200115, end: 20200115
  25. SODIUM LACTATE. [Concomitant]
     Active Substance: SODIUM LACTATE
     Indication: INFUSION
     Dates: start: 20190620, end: 20190620
  26. SODIUM CHLORIDE. [Concomitant]
     Active Substance: SODIUM CHLORIDE
     Dates: start: 20191002, end: 20191002
  27. SODIUM CHLORIDE. [Concomitant]
     Active Substance: SODIUM CHLORIDE
     Dates: start: 20191023, end: 20191023
  28. AMIFOSTINE. [Concomitant]
     Active Substance: AMIFOSTINE
     Dates: start: 20190102, end: 20190102
  29. LEUCOGEN [Concomitant]
     Active Substance: LEUCOGEN
     Dates: start: 20190510
  30. REDUCED GLUTATHIONE SODIUM [Concomitant]
     Active Substance: GLUTATHIONE
     Indication: LIVER INJURY
     Route: 042
     Dates: start: 20200115, end: 20200115
  31. LANSOPRAZOLE. [Concomitant]
     Active Substance: LANSOPRAZOLE
     Dates: start: 20190620, end: 20190620
  32. LANSOPRAZOLE. [Concomitant]
     Active Substance: LANSOPRAZOLE
     Dates: start: 20190801, end: 20190801
  33. AZASETRON HYDROCHLORIDE;SODIUM CHLORIDE [Concomitant]
     Indication: PROPHYLAXIS
     Dates: start: 20190102, end: 20190102
  34. AZASETRON HYDROCHLORIDE;SODIUM CHLORIDE [Concomitant]
     Dates: start: 20190306, end: 20190306
  35. POTASSIUM CHLORIDE. [Concomitant]
     Active Substance: POTASSIUM CHLORIDE
     Indication: BLOOD POTASSIUM DECREASED
     Dates: start: 20191002, end: 20191002
  36. POTASSIUM CHLORIDE. [Concomitant]
     Active Substance: POTASSIUM CHLORIDE
     Route: 042
     Dates: start: 20200204, end: 20200204
  37. GLUTATHIONE REDUCED [Concomitant]
     Indication: LIVER INJURY
     Dates: start: 20190327, end: 20190327
  38. ENEMAC [Concomitant]
     Dates: start: 20190802, end: 20190802
  39. HEPARIN SODIUM. [Concomitant]
     Active Substance: HEPARIN SODIUM
     Dates: start: 20190822, end: 20190822
  40. LEUCOGEN [Concomitant]
     Active Substance: LEUCOGEN
     Indication: THROMBOCYTOPENIA
     Route: 048
     Dates: start: 20190315, end: 20190325
  41. OMEPRAZOLE SODIUM [Concomitant]
     Active Substance: OMEPRAZOLE SODIUM
     Indication: GASTROINTESTINAL INJURY
     Route: 042
     Dates: start: 20200115, end: 20200115
  42. LANSOPRAZOLE. [Concomitant]
     Active Substance: LANSOPRAZOLE
     Dates: start: 20190102, end: 20190102
  43. LANSOPRAZOLE. [Concomitant]
     Active Substance: LANSOPRAZOLE
     Dates: start: 20190123, end: 20190123
  44. LANSOPRAZOLE. [Concomitant]
     Active Substance: LANSOPRAZOLE
     Dates: start: 20190822, end: 20190822
  45. LANSOPRAZOLE. [Concomitant]
     Active Substance: LANSOPRAZOLE
     Dates: start: 20191002, end: 20191002
  46. POTASSIUM CHLORIDE. [Concomitant]
     Active Substance: POTASSIUM CHLORIDE
     Dates: start: 20191023, end: 20191023
  47. GLUTATHIONE REDUCED [Concomitant]
     Route: 042
     Dates: start: 20191113, end: 20191113
  48. ENEMAC [Concomitant]
     Indication: CONSTIPATION
     Dates: start: 20181231, end: 20190103
  49. PALONOSETRON HYDROCHLORIDE. [Concomitant]
     Active Substance: PALONOSETRON HYDROCHLORIDE
     Indication: PROPHYLAXIS
     Dates: start: 20191002, end: 20191002
  50. PACLITAXEL. [Suspect]
     Active Substance: PACLITAXEL
     Indication: NEOPLASM MALIGNANT
     Dosage: DOSE OF LAST PACLITAXEL ADMINISTERED PRIOR TO AE ONSET 300 MG?DATE OF MOST RECENT DOSE OF PACLITAXEL
     Route: 042
     Dates: start: 20181120
  51. AMIFOSTINE. [Concomitant]
     Active Substance: AMIFOSTINE
     Dates: start: 20190306, end: 20190306
  52. LANSOPRAZOLE. [Concomitant]
     Active Substance: LANSOPRAZOLE
     Indication: GASTROINTESTINAL INJURY
     Route: 042
     Dates: start: 20191225, end: 20191225
  53. LANSOPRAZOLE. [Concomitant]
     Active Substance: LANSOPRAZOLE
     Dates: start: 20190911, end: 20190911
  54. POTASSIUM CHLORIDE. [Concomitant]
     Active Substance: POTASSIUM CHLORIDE
     Indication: PROPHYLAXIS
     Dates: start: 20190102, end: 20190102
  55. POTASSIUM CHLORIDE. [Concomitant]
     Active Substance: POTASSIUM CHLORIDE
     Dates: start: 20191204, end: 20191204
  56. GLUTATHIONE REDUCED [Concomitant]
     Route: 042
     Dates: start: 20200204, end: 20200204
  57. REDUCED GLUTATHIONE SODIUM [Concomitant]
     Active Substance: GLUTATHIONE
     Dates: start: 20190911, end: 20190911
  58. DEXAMETHASONE ACETATE [Concomitant]
     Active Substance: DEXAMETHASONE ACETATE
     Route: 048
     Dates: start: 20190213, end: 20190213
  59. POTASSIUM CHLORIDE. [Concomitant]
     Active Substance: POTASSIUM CHLORIDE
     Route: 042
     Dates: start: 20200115, end: 20200115
  60. CALCIUM CARBONATE. [Concomitant]
     Active Substance: CALCIUM CARBONATE
     Indication: MINERAL SUPPLEMENTATION
     Dates: start: 20190329
  61. CALCIUM GLUCONATE. [Concomitant]
     Active Substance: CALCIUM GLUCONATE
     Indication: PROPHYLAXIS
     Dates: start: 20190620, end: 20190620
  62. PLACEBO [Suspect]
     Active Substance: UNSPECIFIED INGREDIENT
     Indication: NEOPLASM MALIGNANT
     Dosage: DATE OF MOST RECENT DOSE OF PLACEBO PRIOR TO ADVERSE EVENT ONSET: 04/FEB/2020
     Route: 042
     Dates: start: 20181120
  63. REDUCED GLUTATHIONE SODIUM [Concomitant]
     Active Substance: GLUTATHIONE
     Dates: start: 20190822, end: 20190822
  64. LEVOTHYROXINE SODIUM. [Concomitant]
     Active Substance: LEVOTHYROXINE SODIUM
     Indication: HYPOTHYROIDISM
     Route: 048
     Dates: start: 20191001
  65. EUTHYROX [Concomitant]
     Active Substance: LEVOTHYROXINE SODIUM
     Dates: start: 20190101, end: 20190113
  66. DEXAMETHASONE ACETATE [Concomitant]
     Active Substance: DEXAMETHASONE ACETATE
     Indication: PROPHYLAXIS
     Route: 048
     Dates: start: 20190101, end: 20190102
  67. POTASSIUM CHLORIDE. [Concomitant]
     Active Substance: POTASSIUM CHLORIDE
     Dates: start: 20191113, end: 20191113
  68. GLUTATHIONE REDUCED [Concomitant]
     Indication: PROPHYLAXIS
     Dates: start: 20190123, end: 20190123
  69. GLUTATHIONE REDUCED [Concomitant]
     Route: 042
     Dates: start: 20191204, end: 20191204
  70. PALONOSETRON HYDROCHLORIDE. [Concomitant]
     Active Substance: PALONOSETRON HYDROCHLORIDE
     Dates: start: 20191023, end: 20191023

REACTIONS (2)
  - Immune-mediated nephritis [Recovered/Resolved]
  - Hypothyroidism [Not Recovered/Not Resolved]

NARRATIVE: CASE EVENT DATE: 20190121
